FAERS Safety Report 17916158 (Version 1)
Quarter: 2020Q2

REPORT INFORMATION
  Report Type: Spontaneous
  Country: US (occurrence: US)
  Receive Date: 20200619
  Receipt Date: 20200619
  Transmission Date: 20200714
  Serious: No
  Sender: FDA-Public Use
  Company Number: None

PATIENT
  Age: 60 Year
  Sex: Female
  Weight: 52.2 kg

DRUGS (7)
  1. PREDNISONE TABLET [Suspect]
     Active Substance: PREDNISONE
     Indication: INTERVERTEBRAL DISC PROTRUSION
     Dosage: ?          QUANTITY:5 TABLET(S);OTHER FREQUENCY:TAPER OFF;?
     Route: 048
     Dates: start: 20200616, end: 20200618
  2. BACLOFEN. [Concomitant]
     Active Substance: BACLOFEN
  3. METHADONE [Concomitant]
     Active Substance: METHADONE HYDROCHLORIDE
  4. DOXAPIN [Concomitant]
  5. ADVIL [Concomitant]
     Active Substance: IBUPROFEN
  6. CLONAZEPAM. [Concomitant]
     Active Substance: CLONAZEPAM
  7. TRINTELLIX [Concomitant]
     Active Substance: VORTIOXETINE HYDROBROMIDE

REACTIONS (4)
  - Anger [None]
  - Irritability [None]
  - Hypertension [None]
  - Hyperhidrosis [None]

NARRATIVE: CASE EVENT DATE: 20200616
